FAERS Safety Report 8876982 (Version 1)
Quarter: 2012Q4

REPORT INFORMATION
  Report Type: 
  Country: FR (occurrence: FR)
  Receive Date: 20121030
  Receipt Date: 20121030
  Transmission Date: 20130627
  Serious: Yes (Hospitalization)
  Sender: FDA-Public Use
  Company Number: FR-MYLANLABS-2012S1021975

PATIENT
  Age: 54 Year
  Sex: Male

DRUGS (7)
  1. AMOXICILLIN [Suspect]
     Indication: OROPHARYNGEAL PAIN
     Route: 065
  2. AMOXICILLIN [Suspect]
     Indication: ORAL PAIN
     Route: 065
  3. LAMOTRIGINE [Suspect]
     Dosage: 50mg daily
     Route: 065
  4. PREDNISOLONE [Concomitant]
     Dosage: 20mg daily
     Route: 065
  5. FENTANYL [Concomitant]
     Dosage: 20 mcg/hour
     Route: 065
  6. CLONAZEPAM [Concomitant]
     Route: 065
  7. PAROXETINE [Concomitant]
     Dosage: 10mg daily
     Route: 065

REACTIONS (6)
  - Stevens-Johnson syndrome [Recovering/Resolving]
  - Toxic epidermal necrolysis [Recovering/Resolving]
  - Respiratory failure [Recovered/Resolved]
  - Hypovolaemic shock [Unknown]
  - Septic shock [Unknown]
  - Multi-organ failure [Recovered/Resolved]
